FAERS Safety Report 5421286-0 (Version None)
Quarter: 2007Q3

REPORT INFORMATION
  Report Type: 
  Country: None (occurrence: None)
  Receive Date: 20070821
  Receipt Date: 20070814
  Transmission Date: 20080115
  Serious: Yes (Other)
  Sender: FDA-Public Use
  Company Number: US-ELI_LILLY_AND_COMPANY-US200708002985

PATIENT
  Sex: Male

DRUGS (3)
  1. HUMULIN N [Suspect]
  2. ILETIN BEEF/PORK REGULAR [Suspect]
  3. ILETIN [Suspect]

REACTIONS (2)
  - BLINDNESS UNILATERAL [None]
  - BLOOD GLUCOSE FLUCTUATION [None]
